FAERS Safety Report 9013582 (Version 1)
Quarter: 2013Q1

REPORT INFORMATION
  Report Type: Spontaneous
  Country: FR (occurrence: FR)
  Receive Date: 20130115
  Receipt Date: 20130115
  Transmission Date: 20140127
  Serious: Yes (Other)
  Sender: FDA-Public Use
  Company Number: PHHY2013FR003020

PATIENT
  Age: 47 Year
  Sex: Female

DRUGS (3)
  1. ZOMETA [Suspect]
     Dosage: UNK
     Dates: start: 201101
  2. CLASTOBAN [Suspect]
     Dosage: UNK
     Dates: start: 201101
  3. CHEMOTHERAPEUTICS [Concomitant]
     Indication: PLASMA CELL MYELOMA

REACTIONS (1)
  - Osteonecrosis of jaw [Recovered/Resolved]
